FAERS Safety Report 5709861-7 (Version None)
Quarter: 2008Q2

REPORT INFORMATION
  Report Type: 
  Country: None (occurrence: None)
  Receive Date: 20080418
  Receipt Date: 20070302
  Transmission Date: 20081010
  Serious: No
  Sender: FDA-Public Use
  Company Number: US-ASTRAZENECA-2007UW04096

PATIENT
  Sex: Female

DRUGS (5)
  1. TOPROL-XL [Suspect]
     Route: 048
  2. NORTRIPTYLINE HCL [Concomitant]
  3. AMBIEN [Concomitant]
  4. MICARDIS [Concomitant]
  5. PREVACID [Concomitant]

REACTIONS (1)
  - INFLUENZA [None]
